FAERS Safety Report 19383668 (Version 1)
Quarter: 2021Q2

REPORT INFORMATION
  Report Type: Spontaneous
  Country: JP (occurrence: JP)
  Receive Date: 20210608
  Receipt Date: 20210608
  Transmission Date: 20210717
  Serious: Yes (Other)
  Sender: FDA-Public Use
  Company Number: JP-LUPIN PHARMACEUTICALS INC.-2021-08839

PATIENT
  Age: 69 Year
  Sex: Male

DRUGS (6)
  1. LOPINAVIR/RITONAVIR [Suspect]
     Active Substance: LOPINAVIR\RITONAVIR
     Indication: COVID-19 PNEUMONIA
     Dosage: UNK (WAS INITIATED FROM DAY 1)
     Route: 065
  2. PROPOFOL. [Concomitant]
     Active Substance: PROPOFOL
     Indication: DRUG THERAPY
     Dosage: UNK DISCONTINUED BY DAY 10
     Route: 065
  3. ROCURONIUM [Concomitant]
     Active Substance: ROCURONIUM BROMIDE
     Indication: DRUG THERAPY
     Dosage: UNK DISCONTINUED BY DAY 7
     Route: 065
  4. MIDAZOLAM. [Concomitant]
     Active Substance: MIDAZOLAM
     Indication: DRUG THERAPY
     Dosage: UNK DISCONTINUED BY DAY 7
     Route: 065
  5. HYDROXYCHLOROQUINE [Suspect]
     Active Substance: HYDROXYCHLOROQUINE
     Indication: COVID-19 PNEUMONIA
     Dosage: UNK
     Route: 065
  6. FENTANYL. [Concomitant]
     Active Substance: FENTANYL
     Indication: DRUG THERAPY
     Dosage: UNK DISCONTINUED BY DAY 13
     Route: 065

REACTIONS (1)
  - Off label use [Unknown]
